FAERS Safety Report 13949691 (Version 5)
Quarter: 2018Q2

REPORT INFORMATION
  Report Type: Report from Study
  Country: PT (occurrence: PT)
  Receive Date: 20170908
  Receipt Date: 20180424
  Transmission Date: 20180711
  Serious: No
  Sender: FDA-Public Use
  Company Number: PT-TAKEDA-2017TUS018027

PATIENT
  Age: 61 Year
  Sex: Female
  Weight: 52 kg

DRUGS (6)
  1. METAMIZOLE MAGNESIUM [Concomitant]
     Active Substance: METAMIZOLE MAGNESIUM
     Indication: GASTROINTESTINAL PAIN
     Dosage: 2 G, UNK
     Route: 048
     Dates: start: 20170515
  2. VEDOLIZUMAB [Suspect]
     Active Substance: VEDOLIZUMAB
     Indication: COLITIS ULCERATIVE
     Dosage: UNK
     Route: 065
     Dates: start: 20170309, end: 20170629
  3. SERENAL                            /00036302/ [Concomitant]
     Indication: ANXIETY DISORDER
     Dosage: 15 MG, QD
     Route: 048
     Dates: start: 20100101
  4. PREDNISOLONE. [Concomitant]
     Active Substance: PREDNISOLONE
     Indication: COLITIS ULCERATIVE
     Dosage: 40 MG, QD
     Route: 048
     Dates: start: 20170725
  5. COSOPT [Concomitant]
     Active Substance: DORZOLAMIDE HYDROCHLORIDE\TIMOLOL MALEATE
     Indication: GLAUCOMA
     Dosage: UNK UNK, BID
     Route: 047
     Dates: start: 19950101
  6. LEVOTIROXIN [Concomitant]
     Active Substance: LEVOTHYROXINE SODIUM
     Indication: HYPOTHYROIDISM
     Dosage: 1 MG, QD
     Route: 048
     Dates: start: 19970101

REACTIONS (1)
  - Type 2 diabetes mellitus [Not Recovered/Not Resolved]

NARRATIVE: CASE EVENT DATE: 20170822
